FAERS Safety Report 7882868-X (Version None)
Quarter: 2011Q4

REPORT INFORMATION
  Report Type: 
  Country: None (occurrence: None)
  Receive Date: 20111101
  Receipt Date: 20110621
  Transmission Date: 20120403
  Serious: No
  Sender: FDA-Public Use
  Company Number: US-AMGEN-USASP2011031870

PATIENT
  Age: 53 Year
  Sex: Female

DRUGS (5)
  1. VITAMIN D [Concomitant]
  2. VITAMIN C                          /00008001/ [Concomitant]
     Dosage: 100 MG, UNK
  3. BUPROPION HCL [Concomitant]
     Dosage: 75 MG, UNK
  4. CALCIUM [Concomitant]
  5. ENBREL [Suspect]
     Indication: PRODUCT USED FOR UNKNOWN INDICATION
     Dosage: 50 MG, 2 TIMES/WK
     Route: 058

REACTIONS (3)
  - INJECTION SITE SWELLING [None]
  - INJECTION SITE REACTION [None]
  - INJECTION SITE HAEMATOMA [None]
